APPROVED DRUG PRODUCT: ABSORICA
Active Ingredient: ISOTRETINOIN
Strength: 25MG
Dosage Form/Route: CAPSULE;ORAL
Application: N021951 | Product #005 | TE Code: AB2
Applicant: SUN PHARMACEUTICAL INDUSTRIES INC
Approved: Aug 15, 2014 | RLD: Yes | RS: No | Type: RX